FAERS Safety Report 5079533-3 (Version None)
Quarter: 2006Q3

REPORT INFORMATION
  Report Type: 
  Country: None (occurrence: None)
  Receive Date: 20060814
  Receipt Date: 20060314
  Transmission Date: 20061208
  Serious: No
  Sender: FDA-Public Use
  Company Number: US-BRISTOL-MYERS SQUIBB COMPANY-13314414

PATIENT
  Age: 65 Year
  Sex: Female
  Weight: 91 kg

DRUGS (11)
  1. GLUCOVANCE [Suspect]
     Indication: DIABETES MELLITUS
  2. LEVAQUIN [Interacting]
     Indication: UPPER RESPIRATORY TRACT INFECTION
     Route: 048
     Dates: start: 20060224, end: 20060224
  3. LASIX [Concomitant]
  4. LOPRESSOR [Concomitant]
  5. LIPITOR [Concomitant]
  6. POTASSIUM [Concomitant]
  7. FLOMAX [Concomitant]
  8. ZESTRIL [Concomitant]
  9. PLAVIX [Concomitant]
  10. ASPIRIN [Concomitant]
  11. MULTI-VITAMIN [Concomitant]

REACTIONS (2)
  - BLOOD GLUCOSE DECREASED [None]
  - DRUG INTERACTION [None]
